FAERS Safety Report 14527007 (Version 1)
Quarter: 2018Q1

REPORT INFORMATION
  Report Type: Spontaneous
  Country: US (occurrence: US)
  Receive Date: 20180212
  Receipt Date: 20180212
  Transmission Date: 20180509
  Serious: Yes (Life-Threatening)
  Sender: FDA-Public Use
  Company Number: None

PATIENT
  Age: 79 Year
  Sex: Male
  Weight: 94.5 kg

DRUGS (8)
  1. 81 MG ASPIRIN [Concomitant]
     Active Substance: ASPIRIN
  2. LISINOPRIL. [Concomitant]
     Active Substance: LISINOPRIL
  3. TRAZODONE [Concomitant]
     Active Substance: TRAZODONE HYDROCHLORIDE
  4. TURMERIC [Concomitant]
     Active Substance: HERBALS\TURMERIC
  5. SUPER B VITAMIN [Concomitant]
  6. TRICOR [Suspect]
     Active Substance: FENOFIBRATE
     Indication: BLOOD TRIGLYCERIDES INCREASED
     Dosage: ?          QUANTITY:30 TABLET(S);?
     Route: 048
     Dates: start: 20170824, end: 20170923
  7. GLYBURIDE. [Concomitant]
     Active Substance: GLYBURIDE
  8. MULTI VITAMIN [Concomitant]
     Active Substance: VITAMINS

REACTIONS (7)
  - Peripheral swelling [None]
  - Rash generalised [None]
  - Pancreatitis [None]
  - Depression [None]
  - Pain [None]
  - Therapy non-responder [None]
  - Weight decreased [None]

NARRATIVE: CASE EVENT DATE: 20170924
